FAERS Safety Report 20375186 (Version 1)
Quarter: 2022Q1

REPORT INFORMATION
  Report Type: Spontaneous
  Country: US (occurrence: None)
  Receive Date: 20220124
  Receipt Date: 20220124
  Transmission Date: 20220423
  Serious: Yes (Other)
  Sender: FDA-Public Use
  Company Number: None

PATIENT
  Age: 36 Year
  Sex: Female

DRUGS (1)
  1. INFED [Suspect]
     Active Substance: IRON DEXTRAN
     Indication: Product used for unknown indication
     Dosage: OTHER FREQUENCY : TEST DOSE X1;?
     Route: 042

REACTIONS (6)
  - Paraesthesia oral [None]
  - Paraesthesia oral [None]
  - Headache [None]
  - Chest discomfort [None]
  - Incorrect dose administered [None]
  - Drug monitoring procedure incorrectly performed [None]

NARRATIVE: CASE EVENT DATE: 20220117
